FAERS Safety Report 9075818 (Version 1)
Quarter: 2013Q1

REPORT INFORMATION
  Report Type: Report from Study
  Country: US (occurrence: US)
  Receive Date: 20130129
  Receipt Date: 20130129
  Transmission Date: 20140127
  Serious: No
  Sender: FDA-Public Use
  Company Number: US-ABBOTT-12P-163-0939500-00

PATIENT
  Age: 25 Year
  Sex: Female

DRUGS (6)
  1. HUMIRA 40 MG/0.8 ML PEN [Suspect]
     Indication: POLYCHONDRITIS
     Dates: start: 20120412
  2. PREDNISONE [Concomitant]
     Indication: PRODUCT USED FOR UNKNOWN INDICATION
     Dosage: 7MG DAILY AND TAPERING FOR OVER A YEAR
  3. METHOTREXATE [Concomitant]
     Indication: PRODUCT USED FOR UNKNOWN INDICATION
  4. FOLIC ACID [Concomitant]
     Indication: PRODUCT USED FOR UNKNOWN INDICATION
  5. INDOCIN [Concomitant]
     Indication: PAIN
  6. PROTONIX [Concomitant]
     Indication: PRODUCT USED FOR UNKNOWN INDICATION
     Dosage: DAILY

REACTIONS (1)
  - Abdominal discomfort [Not Recovered/Not Resolved]
